FAERS Safety Report 16805861 (Version 1)
Quarter: 2019Q3

REPORT INFORMATION
  Report Type: Report from Study
  Country: US (occurrence: US)
  Receive Date: 20190913
  Receipt Date: 20190913
  Transmission Date: 20191005
  Serious: No
  Sender: FDA-Public Use
  Company Number: US-AGIOS-1908US01312

PATIENT

DRUGS (1)
  1. TIBSOVO [Suspect]
     Active Substance: IVOSIDENIB
     Indication: HAEMATOLOGICAL MALIGNANCY
     Dosage: 250 MILLIGRAM, 2 TABLETS (500MG), QD
     Route: 048
     Dates: start: 20190703

REACTIONS (5)
  - Platelet count decreased [Unknown]
  - Decreased appetite [Unknown]
  - Rash pruritic [Unknown]
  - Pruritus [Unknown]
  - Rash macular [Unknown]
